FAERS Safety Report 6737734-X (Version None)
Quarter: 2010Q2

REPORT INFORMATION
  Report Type: 
  Country: None (occurrence: None)
  Receive Date: 20100524
  Receipt Date: 20100514
  Transmission Date: 20101027
  Serious: Yes (Hospitalization)
  Sender: FDA-Public Use
  Company Number: PHHY2010IT31363

PATIENT
  Sex: Female

DRUGS (6)
  1. EXELON [Suspect]
     Indication: SENILE DEMENTIA
     Dosage: 1.5MG X 3
     Route: 048
  2. GLYCERYL TRINITRATE TTS [Concomitant]
     Dosage: UNK,
     Route: 062
  3. TELMISARTAN [Concomitant]
     Dosage: UNK,
  4. NIMODIPINE [Concomitant]
     Dosage: UNK, ORAL DROPS
     Route: 048
  5. SIMVASTATIN [Concomitant]
     Dosage: 20MG,
  6. OMEPRAZOLE [Concomitant]
     Dosage: UNK,

REACTIONS (4)
  - DECREASED INTEREST [None]
  - DEPRESSED MOOD [None]
  - ELECTROCARDIOGRAM PQ INTERVAL PROLONGED [None]
  - SYNCOPE [None]
